FAERS Safety Report 10250972 (Version 3)
Quarter: 2014Q2

REPORT INFORMATION
  Report Type: Report from Study
  Country: DE (occurrence: DE)
  Receive Date: 20140620
  Receipt Date: 20140626
  Transmission Date: 20141212
  Serious: Yes (Hospitalization)
  Sender: FDA-Public Use
  Company Number: PHHY2014DE072323

PATIENT
  Sex: Male
  Weight: 61 kg

DRUGS (12)
  1. ULTIBRO BREEZHALER [Suspect]
     Indication: CHRONIC OBSTRUCTIVE PULMONARY DISEASE
     Dosage: 1 DF, QD
     Route: 055
     Dates: start: 20131218
  2. NO TREATMENT RECEIVED [Suspect]
  3. ASS AL [Concomitant]
     Dosage: 100 MG, UNK
  4. ATROVENT [Concomitant]
     Dosage: AS NEEDED
     Dates: start: 2011
  5. DAXAS [Concomitant]
     Dosage: 1 DF, QD
     Dates: start: 20110325
  6. EPROSARTAN [Concomitant]
     Dosage: 1 DF, QD
  7. GELOMYRTOL [Concomitant]
     Dosage: AS NEEDED
  8. INEGY [Concomitant]
     Dosage: UNK
  9. PREDNI [Concomitant]
     Dosage: 20 MG, PRN
     Dates: start: 2007
  10. SALBUTAMOL AL [Concomitant]
     Dosage: AS NEEDED
  11. SPIRIVA [Concomitant]
     Dosage: 18 UG, UNK
  12. SYMBICORT TU [Concomitant]

REACTIONS (1)
  - Inguinal hernia [Recovered/Resolved]
